FAERS Safety Report 15761875 (Version 2)
Quarter: 2019Q1

REPORT INFORMATION
  Report Type: Spontaneous
  Country: US (occurrence: US)
  Receive Date: 20181226
  Receipt Date: 20190104
  Transmission Date: 20190417
  Serious: Yes (Hospitalization)
  Sender: FDA-Public Use
  Company Number: US-LUNDBECK-DKLU2058632

PATIENT
  Age: 54 Year
  Sex: Male

DRUGS (4)
  1. NORTHERA [Suspect]
     Active Substance: DROXIDOPA
     Indication: AUTONOMIC NEUROPATHY
     Dosage: TUESDAY, THURSDAY, SATURDAY AND SUNDAY
     Route: 048
     Dates: start: 20180612
  2. NORTHERA [Suspect]
     Active Substance: DROXIDOPA
     Dosage: DIALYSIS DAYS
     Route: 048
  3. NORTHERA [Suspect]
     Active Substance: DROXIDOPA
     Route: 048
  4. NORTHERA [Suspect]
     Active Substance: DROXIDOPA
     Dosage: ON DIALYSIS MORNINGS, MONDAY, WEDNESDAY AND FRIDAY
     Route: 048
     Dates: start: 20180612

REACTIONS (2)
  - Product dose omission [Unknown]
  - Amputation [Recovered/Resolved]

NARRATIVE: CASE EVENT DATE: 20181219
